FAERS Safety Report 8359121-3 (Version None)
Quarter: 2012Q2

REPORT INFORMATION
  Report Type: 
  Country: None (occurrence: None)
  Receive Date: 20120515
  Receipt Date: 20120503
  Transmission Date: 20120825
  Serious: Yes (Other)
  Sender: FDA-Public Use
  Company Number: TR-AMGEN-TURSP2012029186

PATIENT
  Age: 36 Year
  Sex: Female

DRUGS (1)
  1. ENBREL [Suspect]
     Indication: RHEUMATOID ARTHRITIS
     Dosage: 50 MG, WEEKLY
     Route: 058
     Dates: start: 20110509, end: 20120424

REACTIONS (7)
  - ERYTHEMA [None]
  - INFLUENZA [None]
  - DYSPHONIA [None]
  - EMOTIONAL DISORDER [None]
  - RASH [None]
  - SKIN BURNING SENSATION [None]
  - TOOTH INFECTION [None]
